FAERS Safety Report 12767527 (Version 2)
Quarter: 2016Q3

REPORT INFORMATION
  Report Type: Report from Study
  Country: US (occurrence: US)
  Receive Date: 20160921
  Receipt Date: 20160927
  Transmission Date: 20161109
  Serious: Yes (Hospitalization, Other)
  Sender: FDA-Public Use
  Company Number: US-BRISTOL-MYERS SQUIBB COMPANY-BMS-2016-076236

PATIENT
  Age: 62 Year
  Sex: Female

DRUGS (5)
  1. CLAFORAN [Concomitant]
     Active Substance: CEFOTAXIME SODIUM
     Indication: PRODUCT USED FOR UNKNOWN INDICATION
     Dosage: 10 UNK, UNK
     Route: 065
     Dates: start: 20150801, end: 20150810
  2. FLAGYL [Concomitant]
     Active Substance: METRONIDAZOLE\METRONIDAZOLE HYDROCHLORIDE
     Indication: PRODUCT USED FOR UNKNOWN INDICATION
     Dosage: UNK
     Route: 065
     Dates: start: 20150801, end: 20150810
  3. IPILIMUMAB [Suspect]
     Active Substance: IPILIMUMAB
     Indication: MALIGNANT MELANOMA
     Dosage: 230 MG, UNK
     Route: 042
     Dates: start: 20150429
  4. CORTICOIDEX [Concomitant]
     Indication: PRODUCT USED FOR UNKNOWN INDICATION
     Dosage: 70 MG, QD
     Route: 065
     Dates: start: 20150801
  5. CORTICOIDEX [Concomitant]
     Dosage: 10 MG, UNK
     Route: 065

REACTIONS (1)
  - Gastrointestinal erosion [Recovered/Resolved with Sequelae]

NARRATIVE: CASE EVENT DATE: 20150801
